FAERS Safety Report 7770311-0 (Version None)
Quarter: 2011Q3

REPORT INFORMATION
  Report Type: 
  Country: None (occurrence: None)
  Receive Date: 20110922
  Receipt Date: 20110404
  Transmission Date: 20111222
  Serious: No
  Sender: FDA-Public Use
  Company Number: US-ASTRAZENECA-2011SE18894

PATIENT
  Age: 29 Year
  Sex: Male
  Weight: 83.9 kg

DRUGS (6)
  1. SEROQUEL [Suspect]
     Indication: PARANOIA
     Route: 048
     Dates: start: 20110401
  2. SEROQUEL [Suspect]
     Route: 048
     Dates: end: 20110403
  3. SEROQUEL [Suspect]
     Route: 048
     Dates: start: 20110401
  4. SEROQUEL [Suspect]
     Route: 048
     Dates: start: 20110401
  5. SEROQUEL [Suspect]
     Indication: ANGER
     Route: 048
     Dates: start: 20110401
  6. SEROQUEL [Suspect]
     Route: 048
     Dates: end: 20110403

REACTIONS (5)
  - RESTLESSNESS [None]
  - OFF LABEL USE [None]
  - CHEST PAIN [None]
  - AGGRESSION [None]
  - AGITATION [None]
